FAERS Safety Report 9258710 (Version 2)
Quarter: 2013Q2

REPORT INFORMATION
  Report Type: Spontaneous
  Country: GB (occurrence: GB)
  Receive Date: 20130426
  Receipt Date: 20130426
  Transmission Date: 20140414
  Serious: Yes (Other)
  Sender: FDA-Public Use
  Company Number: GB-PFIZER INC-2013132182

PATIENT
  Age: 55 Year
  Sex: Female

DRUGS (4)
  1. ADVIL [Suspect]
     Dosage: UNKNOWN
     Route: 065
  2. PAROXETINE [Suspect]
     Dosage: 28 TABLETS
     Route: 065
  3. METHAPYRILENE HYDROCHLORIDE/SALICYLAMIDE [Suspect]
     Dosage: UNKNOWN
     Route: 065
  4. DIPHENHYDRAMINE HYDROCHLORIDE [Suspect]
     Dosage: UNK

REACTIONS (14)
  - Intentional overdose [Unknown]
  - Aggression [Unknown]
  - Anxiety [Unknown]
  - Depression [Unknown]
  - Self esteem decreased [Unknown]
  - Tearfulness [Unknown]
  - Memory impairment [Unknown]
  - Disturbance in attention [Unknown]
  - Depressed mood [Unknown]
  - Mental disorder [Unknown]
  - Suicidal ideation [Unknown]
  - Panic attack [Unknown]
  - Insomnia [Unknown]
  - Suicide attempt [Unknown]
